FAERS Safety Report 20302050 (Version 1)
Quarter: 2022Q1

REPORT INFORMATION
  Report Type: Spontaneous
  Country: US (occurrence: US)
  Receive Date: 20220105
  Receipt Date: 20220105
  Transmission Date: 20220423
  Serious: Yes (Hospitalization)
  Sender: FDA-Public Use
  Company Number: US-STRIDES ARCOLAB LIMITED-2022SP000107

PATIENT
  Age: 7 Year
  Sex: Male

DRUGS (7)
  1. AMANTADINE HYDROCHLORIDE [Suspect]
     Active Substance: AMANTADINE HYDROCHLORIDE
     Indication: Depressed level of consciousness
     Dosage: UNK
     Route: 065
  2. ZOLPIDEM [Suspect]
     Active Substance: ZOLPIDEM TARTRATE
     Indication: Depressed level of consciousness
     Dosage: 2.5 MILLIGRAM; UNK
     Route: 065
  3. ZOLPIDEM [Suspect]
     Active Substance: ZOLPIDEM TARTRATE
     Dosage: RECEIVED 5 MG AT 8 AM ON THE NEXT DAY
     Route: 065
  4. METHYLPHENIDATE [Concomitant]
     Active Substance: METHYLPHENIDATE
     Indication: Depressed level of consciousness
     Dosage: UNK
     Route: 065
  5. BROMOCRIPTINE [Concomitant]
     Active Substance: BROMOCRIPTINE
     Indication: Depressed level of consciousness
     Dosage: RECEIVED HIGH DOSE BROMOCRIPTINE (EXACT DOSE NOT STATED)
     Route: 065
  6. BROMOCRIPTINE [Concomitant]
     Active Substance: BROMOCRIPTINE
     Dosage: DOSE REDUCED TO 1.25MG TWICE DAILY
     Route: 065
  7. AMFETAMINE SULFATE;DEXAMFETAMINE [Concomitant]
     Indication: Depressed level of consciousness
     Dosage: THE DOSE WAS WAS TITRATED TO 10MG, WHICH WAS RECEIVED AT 8 AM AND NOON
     Route: 065

REACTIONS (3)
  - Myoclonus [Unknown]
  - Muscle twitching [Unknown]
  - Off label use [Unknown]
